FAERS Safety Report 5341698-3 (Version None)
Quarter: 2007Q2

REPORT INFORMATION
  Report Type: 
  Country: None (occurrence: None)
  Receive Date: 20070530
  Receipt Date: 20070514
  Transmission Date: 20071010
  Serious: Yes (Death, Hospitalization)
  Sender: FDA-Public Use
  Company Number: 100#08#2006-00396

PATIENT
  Age: 79 Year
  Sex: Female

DRUGS (15)
  1. TRAMADOL HCL [Suspect]
     Indication: BACK PAIN
     Dosage: 50 MG (AS NECESSARY)
     Dates: start: 20040722, end: 20040725
  2. TRAMADOL HCL [Suspect]
     Indication: SCIATICA
     Dosage: 50 MG (AS NECESSARY)
     Dates: start: 20040722, end: 20040725
  3. AMITRIPTLINE HCL [Suspect]
     Indication: DEPRESSION
     Dosage: SEE IMAGE
     Dates: start: 20040712
  4. ROFECOXIB (ROFECOXIB) (ROFECOXIB) [Concomitant]
  5. MORPHINE(MORPHINE) (MORPHINE) [Concomitant]
  6. CO-PROXAMOL(APOREX) (DEXTROPROPOXYPHENE+PARACETAMOL) [Concomitant]
  7. ANTIBACTERIALS [Concomitant]
  8. ACETYLSALICYLIC ACID (ACETYLSALICYLIC ACID) (ACETYLSALICYLIC ACID) [Concomitant]
  9. BACLOFEN [Concomitant]
  10. CELECOXIB(CELECOXIB) (CELECOXIB) [Concomitant]
  11. FYBOGEL(PLANTAGO OVATA) (ISPAGHULA HUSK) [Concomitant]
  12. LEVOTHYROXINE(LEVOTHYROXINE) (THYROXINE) [Concomitant]
  13. SIMVASTATIN [Concomitant]
  14. TEMAZEPAM [Concomitant]
  15. TENORETIC(TENORETIC) (ATENOLOL, CHLORTALIDONE, CHLORTHALIDONE, PHENOXY [Concomitant]

REACTIONS (12)
  - ARTERIOSCLEROSIS CORONARY ARTERY [None]
  - BRADYCARDIA [None]
  - CONVULSION [None]
  - DRUG INTERACTION [None]
  - FALL [None]
  - GAMMA-GLUTAMYLTRANSFERASE INCREASED [None]
  - HALLUCINATION [None]
  - OVERDOSE [None]
  - PNEUMONIA ASPIRATION [None]
  - SEROTONIN SYNDROME [None]
  - SHOCK [None]
  - SPLEEN DISORDER [None]
